APPROVED DRUG PRODUCT: ELIXICON
Active Ingredient: THEOPHYLLINE
Strength: 100MG/5ML
Dosage Form/Route: SUSPENSION;ORAL
Application: A085502 | Product #001
Applicant: FOREST LABORATORIES INC
Approved: Approved Prior to Jan 1, 1982 | RLD: No | RS: No | Type: DISCN